FAERS Safety Report 20859693 (Version 1)
Quarter: 2022Q2

REPORT INFORMATION
  Report Type: Spontaneous
  Country: JP (occurrence: JP)
  Receive Date: 20220523
  Receipt Date: 20220523
  Transmission Date: 20220721
  Serious: Yes (Other)
  Sender: FDA-Public Use
  Company Number: JP-SUN PHARMACEUTICAL INDUSTRIES LTD-2022RR-337575

PATIENT
  Age: 70 Year
  Sex: Male

DRUGS (5)
  1. PREDNISOLONE [Suspect]
     Active Substance: PREDNISOLONE
     Indication: Pyrexia
     Dosage: UNK
     Route: 048
  2. CLARITHROMYCIN [Suspect]
     Active Substance: CLARITHROMYCIN
     Indication: Pulmonary nocardiosis
     Dosage: 500 MILLIGRAM, BID
     Route: 048
  3. METHYLPREDNISOLONE [Suspect]
     Active Substance: METHYLPREDNISOLONE
     Indication: Pyrexia
     Dosage: UNK
     Route: 042
  4. SULFAMETHOXAZOLE\TRIMETHOPRIM [Suspect]
     Active Substance: SULFAMETHOXAZOLE\TRIMETHOPRIM
     Indication: Pneumocystis jirovecii pneumonia
     Dosage: UNK
     Route: 048
  5. CYCLOSPORINE [Suspect]
     Active Substance: CYCLOSPORINE
     Indication: Pyrexia
     Dosage: UNK
     Route: 048

REACTIONS (7)
  - Pneumocystis jirovecii pneumonia [Recovered/Resolved]
  - Nausea [Unknown]
  - Vomiting [Unknown]
  - Acute kidney injury [Unknown]
  - Hyponatraemia [Unknown]
  - Nocardiosis [Recovered/Resolved]
  - Hepatic function abnormal [Recovered/Resolved]
